FAERS Safety Report 5722858-6 (Version None)
Quarter: 2008Q2

REPORT INFORMATION
  Report Type: 
  Country: None (occurrence: None)
  Receive Date: 20080429
  Receipt Date: 20080114
  Transmission Date: 20081010
  Serious: No
  Sender: FDA-Public Use
  Company Number: US-ASTRAZENECA-2008UW00918

PATIENT
  Age: 53 Year
  Sex: Male
  Weight: 95.3 kg

DRUGS (2)
  1. NEXIUM [Suspect]
     Indication: GASTROOESOPHAGEAL REFLUX DISEASE
     Route: 048
     Dates: start: 20060101
  2. ZANTAC [Concomitant]

REACTIONS (2)
  - ERECTILE DYSFUNCTION [None]
  - PENIS DISORDER [None]
